FAERS Safety Report 16626279 (Version 1)
Quarter: 2019Q3

REPORT INFORMATION
  Report Type: Spontaneous
  Country: FR (occurrence: FR)
  Receive Date: 20190724
  Receipt Date: 20190724
  Transmission Date: 20191004
  Serious: Yes (Other)
  Sender: FDA-Public Use
  Company Number: FR-ROCHE-2360202

PATIENT
  Age: 29 Year
  Sex: Female
  Weight: 56 kg

DRUGS (3)
  1. TRUXIMA [Suspect]
     Active Substance: RITUXIMAB-ABBS
     Indication: THROMBOCYTOSIS
     Route: 042
     Dates: start: 20190614, end: 20190614
  2. TOCILIZUMAB. [Suspect]
     Active Substance: TOCILIZUMAB
     Indication: THROMBOCYTOSIS
     Route: 042
     Dates: start: 20190603, end: 20190603
  3. RAPAMUNE [Suspect]
     Active Substance: SIROLIMUS
     Indication: THROMBOCYTOSIS
     Route: 048
     Dates: start: 20190604, end: 20190627

REACTIONS (1)
  - Proteinuria [Recovering/Resolving]

NARRATIVE: CASE EVENT DATE: 20190621
